FAERS Safety Report 6044228-6 (Version None)
Quarter: 2009Q1

REPORT INFORMATION
  Report Type: 
  Country: None (occurrence: None)
  Receive Date: 20090114
  Receipt Date: 20090114
  Transmission Date: 20090719
  Serious: No
  Sender: FDA-Public Use
  Company Number: None

PATIENT
  Age: 24 Year
  Sex: Female
  Weight: 70.7611 kg

DRUGS (1)
  1. ULTRAM [Suspect]
     Indication: FIBROMYALGIA
     Dosage: ULTRAM/TRAMADOL 100MG EVERY 6 HRS. PO
     Route: 048
     Dates: start: 20040301

REACTIONS (5)
  - CONSTIPATION [None]
  - DRUG DEPENDENCE [None]
  - DRUG WITHDRAWAL SYNDROME [None]
  - INSOMNIA [None]
  - LETHARGY [None]
